FAERS Safety Report 5150308-X (Version None)
Quarter: 2006Q4

REPORT INFORMATION
  Report Type: 
  Country: None (occurrence: None)
  Receive Date: 20061114
  Receipt Date: 20060926
  Transmission Date: 20070319
  Serious: Yes (Death)
  Sender: FDA-Public Use
  Company Number: PHHO2006SG16008

PATIENT
  Age: 69 Year
  Sex: Male

DRUGS (10)
  1. ISMN [Concomitant]
  2. RIVASTIGMINE TARTRATE [Suspect]
     Indication: COGNITIVE DISORDER
     Dosage: 3 MG, BID
     Route: 048
     Dates: start: 20060412
  3. ASPIRIN [Concomitant]
     Indication: CEREBROVASCULAR ACCIDENT
  4. OMEPRAZOLE [Concomitant]
     Indication: CEREBROVASCULAR ACCIDENT
  5. DIGOXIN [Concomitant]
     Indication: MYOCARDIAL ISCHAEMIA
  6. CAPTOPRIL [Concomitant]
     Indication: HYPERTENSION
  7. AMLODIPINE [Concomitant]
     Indication: HYPERTENSION
  8. SPIRONOLACTONE [Concomitant]
     Indication: MYOCARDIAL ISCHAEMIA
  9. SIMVASTATIN [Concomitant]
     Indication: HYPERLIPIDAEMIA
  10. FUROSEMIDE [Concomitant]
     Indication: MYOCARDIAL ISCHAEMIA

REACTIONS (3)
  - CIRCULATORY COLLAPSE [None]
  - CONCOMITANT DISEASE PROGRESSION [None]
  - MYOCARDIAL ISCHAEMIA [None]
